FAERS Safety Report 13607563 (Version 2)
Quarter: 2021Q1

REPORT INFORMATION
  Report Type: Spontaneous
  Country: US (occurrence: US)
  Receive Date: 20170602
  Receipt Date: 20210129
  Transmission Date: 20210419
  Serious: No
  Sender: FDA-Public Use
  Company Number: US-LUNDBECK-DKLU2030571

PATIENT
  Age: 29 Month
  Sex: Male

DRUGS (4)
  1. SABRIL [Suspect]
     Active Substance: VIGABATRIN
     Route: 048
  2. SABRIL [Suspect]
     Active Substance: VIGABATRIN
     Indication: EPILEPSY
     Route: 048
  3. SABRIL [Suspect]
     Active Substance: VIGABATRIN
     Indication: BRAIN NEOPLASM
     Route: 048
     Dates: start: 20161101
  4. SABRIL [Suspect]
     Active Substance: VIGABATRIN
     Indication: TUBEROUS SCLEROSIS COMPLEX
     Route: 048

REACTIONS (3)
  - Vomiting [Unknown]
  - Illness [Unknown]
  - Oral disorder [Unknown]

NARRATIVE: CASE EVENT DATE: 202012
